FAERS Safety Report 5607429-4 (Version None)
Quarter: 2008Q1

REPORT INFORMATION
  Report Type: 
  Country: None (occurrence: None)
  Receive Date: 20080130
  Receipt Date: 20080110
  Transmission Date: 20080703
  Serious: No
  Sender: FDA-Public Use
  Company Number: US-JNJFOC-20080102842

PATIENT
  Age: 32 Year
  Sex: Female
  Weight: 92.99 kg

DRUGS (9)
  1. INVEGA [Suspect]
     Route: 048
  2. INVEGA [Suspect]
     Indication: SCHIZOPHRENIA
     Route: 048
  3. TOPAMAX [Concomitant]
     Indication: DECREASED APPETITE
     Route: 048
  4. ABILIFY [Concomitant]
     Indication: SCHIZOPHRENIA
     Route: 048
  5. DETROL LA [Concomitant]
     Indication: HYPERTONIC BLADDER
     Route: 048
  6. AMBIEN [Concomitant]
     Indication: INSOMNIA
     Route: 048
  7. NEXIUM [Concomitant]
     Indication: GASTROOESOPHAGEAL REFLUX DISEASE
     Route: 048
  8. XANAX [Concomitant]
     Indication: ANXIETY
     Route: 048
  9. WELLBUTRIN [Concomitant]
     Indication: DEPRESSION
     Route: 048

REACTIONS (1)
  - INCORRECT DOSE ADMINISTERED [None]
